FAERS Safety Report 14046215 (Version 1)
Quarter: 2017Q4

REPORT INFORMATION
  Report Type: Spontaneous
  Country: FR (occurrence: FR)
  Receive Date: 20171005
  Receipt Date: 20171005
  Transmission Date: 20180321
  Serious: Yes (Other)
  Sender: FDA-Public Use
  Company Number: FR-SEPTODONT-201704273

PATIENT
  Sex: Female

DRUGS (1)
  1. SEPTANEST 40 MG/ML ADR?NALIN?E AU 1/200.000 [Suspect]
     Active Substance: ARTICAINE HYDROCHLORIDE\EPINEPHRINE BITARTRATE
     Indication: LOCAL ANAESTHESIA
     Route: 004
     Dates: start: 20170920, end: 20170920

REACTIONS (3)
  - Swelling face [Recovering/Resolving]
  - Gingival swelling [Recovering/Resolving]
  - Soft tissue necrosis [Recovering/Resolving]

NARRATIVE: CASE EVENT DATE: 20170920
